FAERS Safety Report 16744445 (Version 1)
Quarter: 2019Q3

REPORT INFORMATION
  Report Type: Spontaneous
  Country: DE (occurrence: DE)
  Receive Date: 20190827
  Receipt Date: 20190827
  Transmission Date: 20191005
  Serious: Yes (Other)
  Sender: FDA-Public Use
  Company Number: DE-DSJP-DSE-2019-131318

PATIENT

DRUGS (3)
  1. LIXIANA [Suspect]
     Active Substance: EDOXABAN TOSYLATE
     Indication: ATRIAL FIBRILLATION
     Dosage: 60 MG
     Route: 048
     Dates: start: 20190601, end: 2019
  2. DRUG FOR OSTEOPOROSIS [Concomitant]
     Indication: OSTEOPOROSIS
     Dosage: UNK, ONCE EVERY 1 WK
  3. METOPROLOL SUCCINATE. [Concomitant]
     Active Substance: METOPROLOL SUCCINATE
     Indication: PRODUCT USED FOR UNKNOWN INDICATION
     Dosage: UNK

REACTIONS (3)
  - Visual impairment [Unknown]
  - Retinal vascular occlusion [Unknown]
  - Dizziness [Unknown]

NARRATIVE: CASE EVENT DATE: 2019
